FAERS Safety Report 5691953-2 (Version None)
Quarter: 2008Q1

REPORT INFORMATION
  Report Type: 
  Country: None (occurrence: None)
  Receive Date: 20080331
  Receipt Date: 20080314
  Transmission Date: 20080703
  Serious: Yes (Other)
  Sender: FDA-Public Use
  Company Number: 220001M08GBR

PATIENT
  Sex: Male

DRUGS (1)
  1. SAIZEN [Suspect]
     Dates: start: 20070501

REACTIONS (1)
  - CRANIOPHARYNGIOMA [None]
